FAERS Safety Report 13022865 (Version 1)
Quarter: 2016Q4

REPORT INFORMATION
  Report Type: Spontaneous
  Country: BR (occurrence: BR)
  Receive Date: 20161213
  Receipt Date: 20161213
  Transmission Date: 20170207
  Serious: Yes (Other)
  Sender: FDA-Public Use
  Company Number: BR-GLAXOSMITHKLINE-BR2016GSK181921

PATIENT
  Sex: Female

DRUGS (1)
  1. AVAMYS [Suspect]
     Active Substance: FLUTICASONE FUROATE
     Indication: PRODUCT USED FOR UNKNOWN INDICATION
     Dosage: 2 PUFF(S), QD
     Route: 055

REACTIONS (4)
  - Adenoidal disorder [Unknown]
  - Surgery [Unknown]
  - Pharyngeal operation [Unknown]
  - Tonsillar disorder [Unknown]

NARRATIVE: CASE EVENT DATE: 20161205
